FAERS Safety Report 16149835 (Version 1)
Quarter: 2019Q2

REPORT INFORMATION
  Report Type: Spontaneous
  Country: JP (occurrence: JP)
  Receive Date: 20190402
  Receipt Date: 20190402
  Transmission Date: 20190711
  Serious: Yes (Other)
  Sender: FDA-Public Use
  Company Number: JP-ASTRAZENECA-2019SE29313

PATIENT
  Age: 25645 Day
  Sex: Male
  Weight: 91 kg

DRUGS (13)
  1. NIFEDIPINE CR [Concomitant]
     Active Substance: NIFEDIPINE
     Dates: start: 2009
  2. METGLUCO [Concomitant]
     Active Substance: METFORMIN HYDROCHLORIDE
     Route: 048
     Dates: start: 2009
  3. HIRUDOID [Concomitant]
     Active Substance: GLYCOSAMINOGLYCANS
     Dosage: SEVERAL TIMES/DAY
  4. TAKECAB [Concomitant]
     Active Substance: VONOPRAZAN FUMURATE
     Dates: start: 2009
  5. PREDNISOLONE. [Concomitant]
     Active Substance: PREDNISOLONE
     Dosage: 5.0MG UNKNOWN
  6. GLYCYRON [Concomitant]
  7. IMFINZI [Suspect]
     Active Substance: DURVALUMAB
     Indication: NON-SMALL CELL LUNG CANCER
     Route: 042
     Dates: start: 20190108
  8. TAMSULOSIN HYDROCHLORIDE. [Concomitant]
     Active Substance: TAMSULOSIN HYDROCHLORIDE
     Dates: start: 20181211
  9. ENALAPRIL [Concomitant]
     Active Substance: ENALAPRIL
     Dates: start: 2009
  10. ALESION [Concomitant]
     Active Substance: EPINASTINE HYDROCHLORIDE
  11. IMFINZI [Suspect]
     Active Substance: DURVALUMAB
     Indication: NON-SMALL CELL LUNG CANCER
     Route: 041
  12. VOLTAREN [Concomitant]
     Active Substance: DICLOFENAC SODIUM
  13. EURAX H [Concomitant]
     Dosage: SEVERAL TIMES/DAY

REACTIONS (2)
  - Radiation pneumonitis [Unknown]
  - Urticaria [Recovering/Resolving]

NARRATIVE: CASE EVENT DATE: 20190126
